FAERS Safety Report 10514821 (Version 1)
Quarter: 2014Q4

REPORT INFORMATION
  Report Type: Report from Study
  Country: PH (occurrence: PH)
  Receive Date: 20141013
  Receipt Date: 20141013
  Transmission Date: 20150528
  Serious: Yes (Disabling)
  Sender: FDA-Public Use
  Company Number: PHHY2014PH130026

PATIENT
  Sex: Female

DRUGS (2)
  1. TASIGNA [Suspect]
     Active Substance: NILOTINIB
     Dosage: 600 MG, UNK
     Route: 048
     Dates: start: 20140911
  2. TASIGNA [Suspect]
     Active Substance: NILOTINIB
     Route: 065

REACTIONS (6)
  - Hypoaesthesia [Recovered/Resolved]
  - Ocular hyperaemia [Recovered/Resolved]
  - Skin lesion [Recovered/Resolved]
  - Hypoaesthesia eye [Recovered/Resolved]
  - Eye pain [Recovered/Resolved]
  - Abasia [Recovered/Resolved]
